FAERS Safety Report 19998909 (Version 2)
Quarter: 2021Q4

REPORT INFORMATION
  Report Type: Report from Study
  Country: US (occurrence: US)
  Receive Date: 20211027
  Receipt Date: 20211104
  Transmission Date: 20220303
  Serious: Yes (Other)
  Sender: FDA-Public Use
  Company Number: US-HRARD-2021000322

PATIENT
  Sex: Female

DRUGS (8)
  1. LYSODREN [Suspect]
     Active Substance: MITOTANE
     Dosage: 1000 MG TID
     Route: 048
     Dates: start: 20200720
  2. LYSODREN [Suspect]
     Active Substance: MITOTANE
     Dosage: 2000 MG BID
     Route: 048
  3. LYSODREN [Suspect]
     Active Substance: MITOTANE
     Route: 048
     Dates: start: 20210413
  4. LYSODREN [Suspect]
     Active Substance: MITOTANE
     Route: 048
  5. LYSODREN [Suspect]
     Active Substance: MITOTANE
     Route: 048
     Dates: start: 20201202, end: 20210927
  6. HYDROCORTISONE [Concomitant]
     Active Substance: HYDROCORTISONE
     Dosage: 5MG
  7. HYDROCORTISONE [Concomitant]
     Active Substance: HYDROCORTISONE
     Dosage: 5MG
     Dates: start: 20210413
  8. ASPIRIN LOW TAB 81MG EC [Concomitant]
     Dosage: 81MG
     Route: 065

REACTIONS (5)
  - Pneumonia [Recovered/Resolved]
  - Hepatic enzyme increased [Recovered/Resolved]
  - Nausea [Recovering/Resolving]
  - Dizziness [Recovering/Resolving]
  - Drug ineffective [Recovered/Resolved]

NARRATIVE: CASE EVENT DATE: 20200101
